FAERS Safety Report 7640400 (Version 4)
Quarter: 2013Q2

REPORT INFORMATION
  Report Type: Report from Study
  Country: BR (occurrence: BR)
  Receive Date: 20101026
  Receipt Date: 20130507
  Transmission Date: 20140414
  Serious: Yes (Other)
  Sender: FDA-Public Use
  Company Number: BR-ROCHE-735526

PATIENT
  Age: 53 Year
  Sex: Female
  Weight: 65 kg

DRUGS (13)
  1. ACTEMRA [Suspect]
     Indication: RHEUMATOID ARTHRITIS
     Dosage: FREQUENCY: REPORTED AS 8 MG/KG.
     Route: 042
     Dates: start: 20100501, end: 201011
  2. MABTHERA [Suspect]
     Indication: RHEUMATOID ARTHRITIS
     Dosage: MOST RECENT DOSE RECEIVED ON 25/APR/2013
     Route: 042
     Dates: start: 20101001
  3. METHOTREXATE [Concomitant]
     Indication: RHEUMATOID ARTHRITIS
     Route: 065
  4. TRIAXONE [Concomitant]
     Dosage: DRUG REPORTED AS TRIAXIN
     Route: 065
  5. OMEPRAZOLE [Concomitant]
     Route: 065
  6. PREDSIM [Concomitant]
     Route: 065
  7. FOLIC ACID [Concomitant]
     Indication: RHEUMATOID ARTHRITIS
     Route: 065
  8. ENALAPRIL [Concomitant]
     Indication: BLOOD PRESSURE
     Route: 065
  9. NIMESULIDE [Concomitant]
     Indication: PAIN
     Dosage: FREQUENCY: 1 TABLET, WHEN NECESSARY
     Route: 065
  10. ARADOIS [Concomitant]
     Indication: HYPERTENSION
     Route: 065
  11. CRESTOR [Concomitant]
     Indication: HYPERCHOLESTEROLAEMIA
     Dosage: 1 TABLET AT NIGHT
     Route: 065
  12. CRESTOR [Concomitant]
     Indication: DYSLIPIDAEMIA
  13. TECNOMET [Concomitant]
     Route: 065

REACTIONS (13)
  - Weight increased [Not Recovered/Not Resolved]
  - Drug ineffective [Unknown]
  - Hypertension [Not Recovered/Not Resolved]
  - Malaise [Unknown]
  - Dizziness [Unknown]
  - Dysuria [Unknown]
  - Pain [Not Recovered/Not Resolved]
  - Erythema [Unknown]
  - Burning sensation [Unknown]
  - Pain in extremity [Not Recovered/Not Resolved]
  - Somnolence [Unknown]
  - Vitamin D deficiency [Not Recovered/Not Resolved]
  - Insomnia [Unknown]
